FAERS Safety Report 6747553-6 (Version None)
Quarter: 2010Q2

REPORT INFORMATION
  Report Type: 
  Country: None (occurrence: None)
  Receive Date: 20100528
  Receipt Date: 20100525
  Transmission Date: 20101027
  Serious: Yes (Life-Threatening)
  Sender: FDA-Public Use
  Company Number: AT-JNJFOC-20100509479

PATIENT
  Age: 41 Year
  Sex: Male
  Weight: 78 kg

DRUGS (10)
  1. INVEGA [Suspect]
     Indication: SCHIZOAFFECTIVE DISORDER
     Route: 048
  2. EPIVIR [Concomitant]
     Indication: ACQUIRED IMMUNODEFICIENCY SYNDROME
  3. INDERAL [Concomitant]
     Indication: HYPERTENSION
  4. LIPCOR [Concomitant]
     Indication: HYPERTRIGLYCERIDAEMIA
  5. NORVIR [Concomitant]
     Indication: ACQUIRED IMMUNODEFICIENCY SYNDROME
  6. OLEOVIT [Concomitant]
     Indication: HYPOVITAMINOSIS
     Dosage: 90,000 IE EVERY 3 MONTHS
  7. PANTOPRAZOLE [Concomitant]
     Indication: GASTRITIS
  8. TRAZODONE HCL [Concomitant]
     Indication: DEPRESSION
  9. VIRAMUNE [Concomitant]
     Indication: ACQUIRED IMMUNODEFICIENCY SYNDROME
  10. PREZISTA [Concomitant]
     Indication: ACQUIRED IMMUNODEFICIENCY SYNDROME

REACTIONS (2)
  - DEEP VEIN THROMBOSIS [None]
  - PULMONARY EMBOLISM [None]
